FAERS Safety Report 6085133-9 (Version None)
Quarter: 2009Q1

REPORT INFORMATION
  Report Type: 
  Country: None (occurrence: None)
  Receive Date: 20090220
  Receipt Date: 20090212
  Transmission Date: 20090719
  Serious: Yes (Other)
  Sender: FDA-Public Use
  Company Number: PHHY2009MX03959

PATIENT
  Age: 62 Year
  Sex: Female

DRUGS (4)
  1. EXFORGE [Suspect]
     Indication: HYPERTENSION
     Dosage: 160/5 MG (1 DF DAILY)
     Route: 048
     Dates: start: 20081124, end: 20090130
  2. CINAGERON DROPS [Concomitant]
     Dosage: 1.50/20 MG/ML
  3. BETA BLOCKING AGENTS [Concomitant]
     Indication: HYPERTENSION
  4. FLUNARIZINE [Concomitant]
     Indication: VERTIGO

REACTIONS (4)
  - DELIRIUM [None]
  - HALLUCINATIONS, MIXED [None]
  - OEDEMA PERIPHERAL [None]
  - PAIN [None]
